FAERS Safety Report 6734230-0 (Version None)
Quarter: 2010Q2

REPORT INFORMATION
  Report Type: 
  Country: None (occurrence: None)
  Receive Date: 20100520
  Receipt Date: 20100507
  Transmission Date: 20101027
  Serious: Yes (Other)
  Sender: FDA-Public Use
  Company Number: PHHY2010BR30450

PATIENT
  Sex: Male

DRUGS (6)
  1. DIOVAN [Suspect]
     Dosage: (80 MG), 2 DF, QD
     Dates: start: 20100301
  2. DIOVAN [Suspect]
     Dosage: (80 MG), 1 DF, Q8H
  3. CARVEDILOL [Concomitant]
  4. LASIX [Concomitant]
  5. ALDACTONE [Concomitant]
  6. ASPIRIN [Concomitant]

REACTIONS (5)
  - ASTHENIA [None]
  - CATHETERISATION CARDIAC [None]
  - CHEST PAIN [None]
  - HEART RATE INCREASED [None]
  - VENTRICULAR HYPOKINESIA [None]
